FAERS Safety Report 17939240 (Version 4)
Quarter: 2022Q2

REPORT INFORMATION
  Report Type: Spontaneous
  Country: BR (occurrence: BR)
  Receive Date: 20200624
  Receipt Date: 20220628
  Transmission Date: 20220720
  Serious: Yes (Hospitalization, Other)
  Sender: FDA-Public Use
  Company Number: BR-GLAXOSMITHKLINE-BR2017GSK112946

PATIENT

DRUGS (2)
  1. BENLYSTA [Suspect]
     Active Substance: BELIMUMAB
     Indication: Systemic lupus erythematosus
     Dosage: 600 MG, UNK
     Dates: start: 20170509
  2. HYDROXYCHLOROQUINE SULFATE [Concomitant]
     Active Substance: HYDROXYCHLOROQUINE SULFATE
     Indication: Product used for unknown indication
     Dosage: 400 MG, UNK

REACTIONS (25)
  - Systemic lupus erythematosus [Recovering/Resolving]
  - Renal impairment [Unknown]
  - Blood pressure abnormal [Unknown]
  - Vocal cord disorder [Unknown]
  - Ill-defined disorder [Unknown]
  - Headache [Unknown]
  - Blood pressure increased [Unknown]
  - Pyrexia [Unknown]
  - Decreased immune responsiveness [Unknown]
  - COVID-19 [Recovered/Resolved]
  - Nephritis [Unknown]
  - Influenza [Unknown]
  - Herpes virus infection [Unknown]
  - Vitamin D deficiency [Unknown]
  - Arthralgia [Recovered/Resolved]
  - Pain in extremity [Recovered/Resolved]
  - Weight decreased [Unknown]
  - Oral herpes [Unknown]
  - Nail bed inflammation [Unknown]
  - Condition aggravated [Unknown]
  - Renal disorder [Unknown]
  - Underdose [Recovered/Resolved]
  - Overdose [Unknown]
  - Product dose omission issue [Recovered/Resolved]
  - Inappropriate schedule of product administration [Recovered/Resolved]
